FAERS Safety Report 4326405-5 (Version None)
Quarter: 2004Q1

REPORT INFORMATION
  Report Type: 
  Country: None (occurrence: None)
  Receive Date: 20040325
  Receipt Date: 20031001
  Transmission Date: 20041129
  Serious: No
  Sender: FDA-Public Use
  Company Number: US049838

PATIENT
  Age: 58 Year
  Sex: Male

DRUGS (7)
  1. NEULASTA [Suspect]
     Indication: NEUTROPENIA
     Dosage: SEE IMAGE
     Route: 058
     Dates: start: 20030801
  2. NEULASTA [Suspect]
     Indication: NEUTROPENIA
     Dosage: SEE IMAGE
     Route: 058
     Dates: start: 20030901
  3. PEGINTERFERON ALFA-2A [Concomitant]
  4. RIBAVIRIN [Concomitant]
  5. EPOGEN [Concomitant]
  6. ESCITALOPRAM [Concomitant]
  7. REBETRON [Concomitant]

REACTIONS (3)
  - BONE PAIN [None]
  - CHILLS [None]
  - DRUG INEFFECTIVE [None]
